FAERS Safety Report 25525594 (Version 2)
Quarter: 2025Q4

REPORT INFORMATION
  Report Type: Report from Study
  Country: IN (occurrence: IN)
  Receive Date: 20250707
  Receipt Date: 20251120
  Transmission Date: 20260118
  Serious: Yes (Other)
  Sender: NOVARTIS
  Company Number: IN-002147023-NVSC2023IN280146

PATIENT
  Age: 39 Year
  Sex: Male

DRUGS (1)
  1. TASIGNA [Suspect]
     Active Substance: NILOTINIB
     Indication: Chronic myeloid leukaemia
     Dosage: 400 MG, BID
     Route: 048
     Dates: start: 20220524

REACTIONS (17)
  - AST/ALT ratio abnormal [Unknown]
  - Lymphocyte count abnormal [Unknown]
  - Neutrophil count abnormal [Unknown]
  - Haemoglobin decreased [Unknown]
  - Weight decreased [Unknown]
  - Decreased appetite [Unknown]
  - Mental disorder [Unknown]
  - Depression [Unknown]
  - Psychomotor hyperactivity [Unknown]
  - Ill-defined disorder [Unknown]
  - Blood uric acid abnormal [Unknown]
  - Blood alkaline phosphatase abnormal [Unknown]
  - Metabolic function test abnormal [Unknown]
  - Monocyte count abnormal [Unknown]
  - Eosinophil count abnormal [Unknown]
  - Basophil count abnormal [Unknown]
  - Laboratory test abnormal [Unknown]

NARRATIVE: CASE EVENT DATE: 20230731
